FAERS Safety Report 8107423 (Version 2)
Quarter: 2016Q1

REPORT INFORMATION
  Report Type: Spontaneous
  Country: US (occurrence: US)
  Receive Date: 20110825
  Receipt Date: 20160325
  Transmission Date: 20160526
  Serious: Yes (Other)
  Sender: FDA-Public Use
  Company Number: US-ASTRAZENECA-2011SE49821

PATIENT
  Age: 77 Year
  Sex: Female
  Weight: 73.9 kg

DRUGS (3)
  1. NEXIUM [Suspect]
     Active Substance: ESOMEPRAZOLE MAGNESIUM
     Indication: ACQUIRED OESOPHAGEAL WEB
     Route: 048
     Dates: start: 2012
  2. NEXIUM [Suspect]
     Active Substance: ESOMEPRAZOLE MAGNESIUM
     Indication: ACQUIRED OESOPHAGEAL WEB
     Route: 048
     Dates: start: 201602
  3. NEXIUM [Suspect]
     Active Substance: ESOMEPRAZOLE MAGNESIUM
     Indication: ACQUIRED OESOPHAGEAL WEB
     Route: 048
     Dates: start: 201603

REACTIONS (8)
  - Product use issue [Unknown]
  - Blood creatinine increased [Unknown]
  - Dyspepsia [Unknown]
  - Product use issue [Unknown]
  - Myocardial infarction [Unknown]
  - Renal impairment [Unknown]
  - Drug dose omission [Unknown]
  - Intentional product use issue [Unknown]

NARRATIVE: CASE EVENT DATE: 2012
